FAERS Safety Report 13213389 (Version 1)
Quarter: 2017Q1

REPORT INFORMATION
  Report Type: Spontaneous
  Country: GB (occurrence: GB)
  Receive Date: 20170210
  Receipt Date: 20170210
  Transmission Date: 20170428
  Serious: Yes (Hospitalization)
  Sender: FDA-Public Use
  Company Number: GB-TEVA-737467ACC

PATIENT
  Age: 74 Year

DRUGS (9)
  1. TRIMETHOPRIM. [Suspect]
     Active Substance: TRIMETHOPRIM
     Indication: URINARY TRACT INFECTION
     Dates: start: 20170106, end: 20170112
  2. ADCAL-D3 [Concomitant]
     Active Substance: CALCIUM CARBONATE\CHOLECALCIFEROL
  3. ASPIRIN. [Concomitant]
     Active Substance: ASPIRIN
  4. QUININE [Concomitant]
     Active Substance: QUININE
  5. OMEPRAZOLE. [Concomitant]
     Active Substance: OMEPRAZOLE
  6. SODIUM BICARBONATE. [Concomitant]
     Active Substance: SODIUM BICARBONATE
  7. MOXONIDINE [Concomitant]
     Active Substance: MOXONIDINE
  8. AZATHIOPRINE. [Concomitant]
     Active Substance: AZATHIOPRINE
  9. CICLOSPORIN [Concomitant]
     Active Substance: CYCLOSPORINE

REACTIONS (4)
  - Pain [Recovered/Resolved]
  - Headache [Unknown]
  - Acute kidney injury [Recovering/Resolving]
  - Nausea [Unknown]

NARRATIVE: CASE EVENT DATE: 20170112
